FAERS Safety Report 20300247 (Version 1)
Quarter: 2022Q1

REPORT INFORMATION
  Report Type: Spontaneous
  Country: US (occurrence: US)
  Receive Date: 20220105
  Receipt Date: 20220105
  Transmission Date: 20220423
  Serious: No
  Sender: FDA-Public Use
  Company Number: US-CMP PHARMA-2021CMP00038

PATIENT
  Sex: Female
  Weight: 58.967 kg

DRUGS (3)
  1. SPS [Suspect]
     Active Substance: SODIUM POLYSTYRENE SULFONATE
     Indication: Blood potassium increased
     Dosage: 7.5 MG, 1X/DAY
     Dates: start: 2021, end: 202111
  2. SPS [Suspect]
     Active Substance: SODIUM POLYSTYRENE SULFONATE
     Dosage: 2 TBSP, 1X/DAY
     Dates: start: 202111, end: 20211115
  3. UNSPECIFIED INGREDIENT [Concomitant]
     Active Substance: UNSPECIFIED INGREDIENT

REACTIONS (8)
  - Peripheral swelling [Recovering/Resolving]
  - Constipation [Recovering/Resolving]
  - Discomfort [Recovering/Resolving]
  - Dizziness [Recovering/Resolving]
  - Incontinence [Unknown]
  - Generalised oedema [Recovering/Resolving]
  - Abdominal distension [Recovering/Resolving]
  - Drug ineffective [Recovered/Resolved]

NARRATIVE: CASE EVENT DATE: 20210101
